FAERS Safety Report 6931938-9 (Version None)
Quarter: 2010Q3

REPORT INFORMATION
  Report Type: 
  Country: None (occurrence: None)
  Receive Date: 20100812
  Receipt Date: 20100812
  Transmission Date: 20110219
  Serious: No
  Sender: FDA-Public Use
  Company Number: 2009-00257

PATIENT
  Age: 54 Year
  Sex: Female
  Weight: 58.9676 kg

DRUGS (3)
  1. ZICAM NASAL PRODUCTS [Suspect]
     Dosage: SPORADIC, 4 MONTHS
     Dates: start: 20090201, end: 20090601
  2. PREMARIN [Concomitant]
  3. ZYRTEC [Concomitant]

REACTIONS (3)
  - AGEUSIA [None]
  - ANOSMIA [None]
  - DYSPNOEA [None]
